FAERS Safety Report 4877989-X (Version None)
Quarter: 2006Q1

REPORT INFORMATION
  Report Type: 
  Country: None (occurrence: None)
  Receive Date: 20060110
  Receipt Date: 20060102
  Transmission Date: 20060701
  Serious: Yes (Other)
  Sender: FDA-Public Use
  Company Number: 2006-CZ-00040

PATIENT
  Age: 52 Year
  Sex: Male

DRUGS (7)
  1. GABAPENTIN [Suspect]
     Indication: RESTLESS LEGS SYNDROME
     Dosage: 100 MG AT BEDTIME
     Dates: start: 20020902, end: 20021201
  2. EPOGEN [Concomitant]
  3. MULTI-VITAMIN [Concomitant]
  4. RANITIDINE [Concomitant]
  5. CLONAZEPAM [Concomitant]
  6. SERTRALINE HYDROCHLORIDE [Concomitant]
  7. PYRIDOXINE HYDROCHLORIDE INJ [Concomitant]

REACTIONS (2)
  - BLOOD CREATINE PHOSPHOKINASE INCREASED [None]
  - HYPOAESTHESIA [None]
